FAERS Safety Report 17497805 (Version 1)
Quarter: 2020Q1

REPORT INFORMATION
  Report Type: Spontaneous
  Country: GB (occurrence: GB)
  Receive Date: 20200304
  Receipt Date: 20200304
  Transmission Date: 20200409
  Serious: Yes (Other)
  Sender: FDA-Public Use
  Company Number: GB-MYLANLABS-2020M1023209

PATIENT
  Age: 41 Year
  Sex: Male

DRUGS (1)
  1. CLOZARIL [Suspect]
     Active Substance: CLOZAPINE
     Indication: SCHIZOPHRENIA
     Dosage: UNK
     Route: 048
     Dates: start: 20200203, end: 20200207

REACTIONS (8)
  - Dizziness [Unknown]
  - Neutropenia [Recovered/Resolved]
  - Syncope [Unknown]
  - General physical condition abnormal [Unknown]
  - Disorientation [Unknown]
  - Platelet count decreased [Recovered/Resolved]
  - Hypotension [Unknown]
  - Dyskinesia [Unknown]

NARRATIVE: CASE EVENT DATE: 202002
